FAERS Safety Report 22645694 (Version 1)
Quarter: 2023Q2

REPORT INFORMATION
  Report Type: Spontaneous
  Country: GB (occurrence: GB)
  Receive Date: 20230627
  Receipt Date: 20230627
  Transmission Date: 20230721
  Serious: Yes (Other)
  Sender: FDA-Public Use
  Company Number: None

PATIENT
  Age: 39 Year
  Sex: Female
  Weight: 74 kg

DRUGS (4)
  1. FLUCONAZOLE [Suspect]
     Active Substance: FLUCONAZOLE
     Dosage: FOR 4 WEEK
     Route: 048
     Dates: start: 20230615
  2. DESOGESTREL [Concomitant]
     Active Substance: DESOGESTREL
     Dosage: 1 DF, 1X/DAY
     Dates: start: 20210329
  3. ALBUTEROL [Concomitant]
     Active Substance: ALBUTEROL
     Dosage: 2 DOSES
     Route: 055
     Dates: start: 20230104
  4. MINERAL OIL [Concomitant]
     Active Substance: MINERAL OIL
     Dosage: APPLY TWO TO FOUR TIMES A DAY
     Dates: start: 20230615

REACTIONS (3)
  - Diarrhoea [Recovered/Resolved]
  - Swelling face [Recovered/Resolved]
  - Wheezing [Unknown]

NARRATIVE: CASE EVENT DATE: 20230617
